FAERS Safety Report 18816505 (Version 1)
Quarter: 2021Q1

REPORT INFORMATION
  Report Type: Spontaneous
  Country: US (occurrence: US)
  Receive Date: 20210130
  Receipt Date: 20210130
  Transmission Date: 20210419
  Serious: No
  Sender: FDA-Public Use
  Company Number: None

PATIENT
  Age: 35 Year
  Sex: Female

DRUGS (22)
  1. AMOXICILLIN. [Concomitant]
     Active Substance: AMOXICILLIN
  2. BUSPAR [Concomitant]
     Active Substance: BUSPIRONE HYDROCHLORIDE
  3. LISINOPRIL. [Concomitant]
     Active Substance: LISINOPRIL
  4. MELATONIN [Concomitant]
     Active Substance: MELATONIN
  5. METOPROLOL. [Concomitant]
     Active Substance: METOPROLOL
  6. MONTELUKAST [Concomitant]
     Active Substance: MONTELUKAST SODIUM
  7. SERTRALINE [Concomitant]
     Active Substance: SERTRALINE HYDROCHLORIDE
  8. MULTIVITAMIN [Concomitant]
     Active Substance: VITAMINS
  9. REMDESIVIR. [Concomitant]
     Active Substance: REMDESIVIR
  10. ALDACTONE [Concomitant]
     Active Substance: SPIRONOLACTONE
  11. ALBUTEROL. [Concomitant]
     Active Substance: ALBUTEROL
  12. TRI?SPRINTEC [Concomitant]
     Active Substance: ETHINYL ESTRADIOL\NORGESTIMATE
  13. BREO ELLIPTA [Concomitant]
     Active Substance: FLUTICASONE FUROATE\VILANTEROL TRIFENATATE
  14. JANTOVEN [Concomitant]
     Active Substance: WARFARIN SODIUM
  15. ALDACTONE [Concomitant]
     Active Substance: SPIRONOLACTONE
  16. DECADRON [Concomitant]
     Active Substance: DEXAMETHASONE
  17. WARFARIN [Concomitant]
     Active Substance: WARFARIN
  18. BENZONATATE. [Concomitant]
     Active Substance: BENZONATATE
  19. BAMLANIVIMAB. [Suspect]
     Active Substance: BAMLANIVIMAB
     Indication: COVID-19
     Route: 042
     Dates: start: 20210125, end: 20210125
  20. VIBRAMYCIN [Concomitant]
     Active Substance: DOXYCYCLINE
  21. CLARITIN [Concomitant]
     Active Substance: LORATADINE
  22. ONDANSETRON [Concomitant]
     Active Substance: ONDANSETRON

REACTIONS (3)
  - Hypoxia [None]
  - Dyspnoea [None]
  - Oxygen saturation decreased [None]

NARRATIVE: CASE EVENT DATE: 20210125
